FAERS Safety Report 19116089 (Version 1)
Quarter: 2021Q2

REPORT INFORMATION
  Report Type: Spontaneous
  Country: JP (occurrence: JP)
  Receive Date: 20210409
  Receipt Date: 20210409
  Transmission Date: 20210717
  Serious: Yes (Hospitalization, Other)
  Sender: FDA-Public Use
  Company Number: JP-VALIDUS PHARMACEUTICALS LLC-JP-2021VAL001027

PATIENT
  Age: 47 Year
  Sex: Female

DRUGS (2)
  1. LASIX [Suspect]
     Active Substance: FUROSEMIDE
     Dosage: UNK, QD
     Route: 048
  2. LASIX [Suspect]
     Active Substance: FUROSEMIDE
     Indication: WEIGHT CONTROL
     Dosage: 40 MG, QD
     Route: 048

REACTIONS (13)
  - Acute kidney injury [Unknown]
  - Dyspnoea [Unknown]
  - Urinary tract infection [Unknown]
  - Renal impairment [Unknown]
  - Off label use [Unknown]
  - Blood creatinine increased [Unknown]
  - Dehydration [Unknown]
  - Palpitations [Unknown]
  - Headache [Unknown]
  - Renal atrophy [Unknown]
  - Nephrocalcinosis [Unknown]
  - Pyrexia [Unknown]
  - Proteinuria [Unknown]
